FAERS Safety Report 5477511-3 (Version None)
Quarter: 2007Q4

REPORT INFORMATION
  Report Type: 
  Country: None (occurrence: None)
  Receive Date: 20071004
  Receipt Date: 20070927
  Transmission Date: 20080405
  Serious: Yes (Hospitalization)
  Sender: FDA-Public Use
  Company Number: JP-ABBOTT-07P-087-0418705-00

PATIENT
  Age: 78 Year
  Sex: Female
  Weight: 35 kg

DRUGS (10)
  1. CLARITHROMYCIN [Suspect]
     Indication: HELICOBACTER INFECTION
     Route: 048
     Dates: start: 20070710, end: 20070713
  2. TAKEPRON OD [Suspect]
     Indication: GASTRIC ULCER
     Route: 048
     Dates: start: 20070321, end: 20070413
  3. RABEPRAZOLE SODIUM [Suspect]
     Indication: HELICOBACTER INFECTION
     Route: 048
     Dates: start: 20070414, end: 20070418
  4. RABEPRAZOLE SODIUM [Suspect]
     Route: 048
     Dates: start: 20070702, end: 20070709
  5. RABEPRAZOLE SODIUM [Suspect]
     Route: 048
     Dates: start: 20070710, end: 20070713
  6. AMOXICILLIN [Suspect]
     Indication: HELICOBACTER INFECTION
     Route: 048
     Dates: start: 20070710, end: 20070713
  7. MAGNESIUM OXIDE [Concomitant]
     Indication: CONSTIPATION
     Route: 048
     Dates: start: 20070604
  8. ETODOLAC [Concomitant]
     Indication: DRUG USE FOR UNKNOWN INDICATION
     Route: 048
     Dates: start: 20070605
  9. AZULENE SULFONATE SODIUM/L-GLUTAMINE [Concomitant]
     Indication: DRUG USE FOR UNKNOWN INDICATION
     Route: 048
     Dates: start: 20070605
  10. FAMOTIDINE [Concomitant]
     Indication: DRUG USE FOR UNKNOWN INDICATION
     Dates: start: 20070419

REACTIONS (5)
  - BLOOD CALCIUM INCREASED [None]
  - BLOOD PARATHYROID HORMONE INCREASED [None]
  - CREATININE RENAL CLEARANCE DECREASED [None]
  - HYPERKALAEMIA [None]
  - RENAL IMPAIRMENT [None]
